FAERS Safety Report 8391267-6 (Version None)
Quarter: 2012Q2

REPORT INFORMATION
  Report Type: 
  Country: None (occurrence: None)
  Receive Date: 20120521
  Receipt Date: 20120504
  Transmission Date: 20120825
  Serious: Yes (Hospitalization)
  Sender: FDA-Public Use
  Company Number: DSA_48928_2012

PATIENT
  Sex: Male

DRUGS (2)
  1. XENAZINE [Suspect]
     Indication: PRODUCT USED FOR UNKNOWN INDICATION
     Dosage: (12.5 MG QD ORAL), (DF ORAL)
     Route: 048
     Dates: start: 20111109, end: 20111129
  2. ARTANE [Concomitant]

REACTIONS (7)
  - BLOOD CREATINE PHOSPHOKINASE INCREASED [None]
  - DRUG INEFFECTIVE [None]
  - DEHYDRATION [None]
  - DEVELOPMENTAL DELAY [None]
  - CHOREA [None]
  - PYREXIA [None]
  - DYSTONIA [None]
